FAERS Safety Report 9611599 (Version 2)
Quarter: 2013Q4

REPORT INFORMATION
  Report Type: Spontaneous
  Country: US (occurrence: US)
  Receive Date: 20131010
  Receipt Date: 20131031
  Transmission Date: 20140711
  Serious: No
  Sender: FDA-Public Use
  Company Number: US-009507513-1310USA004491

PATIENT
  Age: 29 Year
  Sex: Female
  Weight: 47.62 kg

DRUGS (1)
  1. NUVARING [Suspect]
     Indication: CONTRACEPTION
     Dosage: 1 RING 3 WEEK ON AND 1 WEEK OFF
     Route: 067
     Dates: start: 20130702

REACTIONS (2)
  - Discomfort [Not Recovered/Not Resolved]
  - Dyspareunia [Not Recovered/Not Resolved]
